FAERS Safety Report 19436010 (Version 1)
Quarter: 2021Q2

REPORT INFORMATION
  Report Type: Spontaneous
  Country: FR (occurrence: FR)
  Receive Date: 20210618
  Receipt Date: 20210618
  Transmission Date: 20210717
  Serious: Yes (Hospitalization, Other)
  Sender: FDA-Public Use
  Company Number: FR-HIKMA PHARMACEUTICALS USA INC.-FR-H14001-21-54657

PATIENT
  Age: 38 Year
  Sex: Female

DRUGS (5)
  1. VENLAFAXINE XR [Suspect]
     Active Substance: VENLAFAXINE HYDROCHLORIDE
     Indication: OVERDOSE
     Route: 065
  2. QUETIAPINE XR [Suspect]
     Active Substance: QUETIAPINE
     Indication: OVERDOSE
     Route: 065
  3. ZOPICLONE [Suspect]
     Active Substance: ZOPICLONE
     Indication: OVERDOSE
     Route: 065
  4. FLUMAZENIL. [Suspect]
     Active Substance: FLUMAZENIL
     Indication: OVERDOSE
     Dosage: UNDEFINED QUANTITY
     Route: 065
  5. BROMAZEPAM [Suspect]
     Active Substance: BROMAZEPAM
     Indication: OVERDOSE
     Dosage: UNDEFINED QUANTITY
     Route: 065

REACTIONS (2)
  - Generalised tonic-clonic seizure [Recovered/Resolved]
  - Coma [Recovered/Resolved]
